FAERS Safety Report 8359792-1 (Version None)
Quarter: 2012Q2

REPORT INFORMATION
  Report Type: 
  Country: None (occurrence: None)
  Receive Date: 20120515
  Receipt Date: 20120508
  Transmission Date: 20120825
  Serious: Yes (Other)
  Sender: FDA-Public Use
  Company Number: PHEH2012US002664

PATIENT
  Sex: Female
  Weight: 49.887 kg

DRUGS (1)
  1. GILENYA [Suspect]
     Indication: MULTIPLE SCLEROSIS
     Dosage: 0.5 MG, QD
     Route: 048
     Dates: start: 20110209, end: 20120331

REACTIONS (5)
  - MALAISE [None]
  - PYREXIA [None]
  - ARRHYTHMIA [None]
  - WHITE BLOOD CELL COUNT DECREASED [None]
  - ASTHENIA [None]
